FAERS Safety Report 18247260 (Version 2)
Quarter: 2020Q4

REPORT INFORMATION
  Report Type: Spontaneous
  Country: FR (occurrence: FR)
  Receive Date: 20200909
  Receipt Date: 20201221
  Transmission Date: 20210113
  Serious: Yes (Hospitalization, Other)
  Sender: FDA-Public Use
  Company Number: FR-AMNEAL PHARMACEUTICALS-2020-AMRX-02725

PATIENT
  Age: 44 Year
  Sex: Female

DRUGS (2)
  1. KETAMINE [Concomitant]
     Active Substance: KETAMINE
     Indication: NEUROPATHY PERIPHERAL
     Dosage: UNK (TRIMESTRAL)
     Route: 065
  2. GABAPENTIN. [Suspect]
     Active Substance: GABAPENTIN
     Indication: NEUROPATHY PERIPHERAL
     Dosage: UNK
     Route: 065

REACTIONS (5)
  - Platelet dysfunction [Recovered/Resolved]
  - Menorrhagia [Recovered/Resolved]
  - Contusion [Recovered/Resolved]
  - Iron deficiency anaemia [Unknown]
  - Mouth haemorrhage [Recovered/Resolved]
